FAERS Safety Report 6674129-1 (Version None)
Quarter: 2010Q2

REPORT INFORMATION
  Report Type: 
  Country: None (occurrence: None)
  Receive Date: 20100407
  Receipt Date: 20100323
  Transmission Date: 20101027
  Serious: Yes (Hospitalization)
  Sender: FDA-Public Use
  Company Number: 02100-JPN-06-0016

PATIENT
  Age: 81 Year
  Sex: Female

DRUGS (6)
  1. PLETAL [Suspect]
     Dosage: 100 MG, BID ORAL
     Route: 048
     Dates: start: 20060110, end: 20060112
  2. ASPIRIN [Suspect]
     Dosage: 100 MG, QD ORAL
     Route: 048
     Dates: start: 20060110, end: 20060112
  3. HEPARIN [Suspect]
     Dosage: 10 ML, QD; INTRAVENOUS
     Route: 042
     Dates: start: 20060104, end: 20060112
  4. ANTIDIABETIC AGENT (ANTIDIABETIC AGENT) [Concomitant]
  5. ISOSORBIDE DINITRATE [Concomitant]
  6. HANP (CARPERITIDE) INJECTION [Concomitant]

REACTIONS (2)
  - MUSCLE HAEMORRHAGE [None]
  - PNEUMONIA ASPIRATION [None]
